FAERS Safety Report 5872630-1 (Version None)
Quarter: 2008Q3

REPORT INFORMATION
  Report Type: 
  Country: None (occurrence: None)
  Receive Date: 20080905
  Receipt Date: 20080826
  Transmission Date: 20090109
  Serious: Yes (Hospitalization, Other)
  Sender: FDA-Public Use
  Company Number: US-ELI_LILLY_AND_COMPANY-US200808005892

PATIENT
  Sex: Female

DRUGS (4)
  1. FORTEO [Suspect]
     Dosage: UNK, UNK
     Dates: start: 20060101
  2. VICODIN [Concomitant]
     Indication: PAIN
     Dosage: 5/500
  3. ULTRAM [Concomitant]
     Indication: PAIN
     Dosage: UNK, EACH EVENING
     Dates: start: 20080401
  4. CODEINE SUL TAB [Concomitant]
     Dates: start: 20070607

REACTIONS (2)
  - FALL [None]
  - SURGERY [None]
